FAERS Safety Report 19783228 (Version 1)
Quarter: 2021Q3

REPORT INFORMATION
  Report Type: Spontaneous
  Country: US (occurrence: US)
  Receive Date: 20210903
  Receipt Date: 20210903
  Transmission Date: 20211014
  Serious: No
  Sender: FDA-Public Use
  Company Number: US-ALLERGAN-2040130US

PATIENT
  Sex: Male

DRUGS (1)
  1. ANDRODERM [Suspect]
     Active Substance: TESTOSTERONE
     Indication: ANDROGEN DEFICIENCY
     Dosage: 1 DF, QD
     Route: 062
     Dates: start: 202009, end: 20201012

REACTIONS (3)
  - Hypersensitivity [Unknown]
  - Application site erythema [Recovered/Resolved]
  - Application site pruritus [Recovering/Resolving]
